FAERS Safety Report 20290413 (Version 1)
Quarter: 2022Q1

REPORT INFORMATION
  Report Type: Spontaneous
  Country: US (occurrence: US)
  Receive Date: 20220104
  Receipt Date: 20220104
  Transmission Date: 20220423
  Serious: No
  Sender: FDA-Public Use
  Company Number: US-GLENMARK PHARMACEUTICALS-2021GMK068813

PATIENT

DRUGS (3)
  1. MUPIROCIN [Suspect]
     Active Substance: MUPIROCIN
     Indication: Nasal discomfort
     Dosage: UNK
     Route: 045
  2. MUPIROCIN [Suspect]
     Active Substance: MUPIROCIN
     Indication: Allergic sinusitis
  3. MUPIROCIN [Suspect]
     Active Substance: MUPIROCIN
     Indication: Rhinalgia

REACTIONS (2)
  - Product use in unapproved indication [Unknown]
  - Product use issue [Unknown]
